FAERS Safety Report 7085967-8 (Version None)
Quarter: 2010Q4

REPORT INFORMATION
  Report Type: 
  Country: None (occurrence: None)
  Receive Date: 20101027
  Receipt Date: 20101018
  Transmission Date: 20110411
  Serious: Yes (Other)
  Sender: FDA-Public Use
  Company Number: 2010US004361

PATIENT
  Age: 50 Year
  Sex: Female

DRUGS (1)
  1. PROGRAF [Suspect]
     Indication: LIVER TRANSPLANT

REACTIONS (9)
  - CSF TEST ABNORMAL [None]
  - HYPOVOLAEMIA [None]
  - INTRACRANIAL HYPOTENSION [None]
  - MIGRAINE [None]
  - NAUSEA [None]
  - PAIN [None]
  - PHONOPHOBIA [None]
  - PHOTOPHOBIA [None]
  - VOMITING [None]
